FAERS Safety Report 23925816 (Version 1)
Quarter: 2024Q2

REPORT INFORMATION
  Report Type: Report from Study
  Country: AU (occurrence: None)
  Receive Date: 20240531
  Receipt Date: 20240531
  Transmission Date: 20240716
  Serious: Yes (Other)
  Sender: FDA-Public Use
  Company Number: 2024A126685

PATIENT
  Sex: Female

DRUGS (1)
  1. SELUMETINIB [Suspect]
     Active Substance: SELUMETINIB
     Indication: Symptomatic treatment
     Route: 048

REACTIONS (4)
  - Seizure [Unknown]
  - Dysarthria [Unknown]
  - Headache [Unknown]
  - Lethargy [Unknown]
